FAERS Safety Report 9530939 (Version 1)
Quarter: 2013Q1

REPORT INFORMATION
  Report Type: Spontaneous
  Country: US (occurrence: None)
  Receive Date: 20130329
  Receipt Date: 20130329
  Transmission Date: 20140127
  Serious: No
  Sender: FDA-Public Use
  Company Number: 1000041252

PATIENT
  Age: 64 Year
  Sex: Female

DRUGS (9)
  1. LINZESS (LINACLOTIDE) (145 MICROGRAM, CAPSULES) [Suspect]
     Indication: GASTROINTESTINAL DISORDER
     Route: 048
     Dates: start: 201212, end: 20121224
  2. RESTASIS (CYCLOSPORIN) [Concomitant]
  3. ACICLOVIR (ACYCLOVIR) (ACYCLOVIR) [Concomitant]
  4. HYDROCHLOROTHIAZIDE (HYDROCHLOROTHIAZIDE) [Concomitant]
  5. FOLIC ACID (FOLIC ACID) [Concomitant]
  6. LIPITOR (ATORVASTATIN CALCIUM) [Concomitant]
  7. MIRALAX (POLYETHYLENE GLYCOL) [Concomitant]
  8. CLONAZEPAM (CLONAZEPAM) [Concomitant]
  9. MVI (VITAMINS NOS) [Concomitant]

REACTIONS (3)
  - Abdominal pain [None]
  - Diarrhoea [None]
  - Off label use [None]
